FAERS Safety Report 11916024 (Version 2)
Quarter: 2017Q3

REPORT INFORMATION
  Report Type: Spontaneous
  Country: US (occurrence: US)
  Receive Date: 20160114
  Receipt Date: 20170920
  Transmission Date: 20171127
  Serious: Yes (Other)
  Sender: FDA-Public Use
  Company Number: US-SUN PHARMACEUTICAL INDUSTRIES LTD-2015US-109473

PATIENT
  Age: 30 Year
  Sex: Female

DRUGS (4)
  1. CELLCEPT [Suspect]
     Active Substance: MYCOPHENOLATE MOFETIL\MYCOPHENOLATE MOFETIL HYDROCHLORIDE
     Indication: IMMUNOSUPPRESSION
     Dosage: UNK
     Route: 065
  2. CYTOTAXAN (CYCLOPHOSPHAMIDE) [Suspect]
     Active Substance: CYCLOPHOSPHAMIDE
     Indication: IMMUNOSUPPRESSION
     Dosage: 6 CYCLES
     Route: 065
  3. PREDNISONE. [Suspect]
     Active Substance: PREDNISONE
     Indication: IMMUNOSUPPRESSION
     Dosage: 60 MG, DAILY
     Route: 065
  4. COENZYME Q12 [Concomitant]
     Indication: IMMUNOSUPPRESSION
     Dosage: 500 MG, Q1H
     Route: 065

REACTIONS (1)
  - Nocardiosis [Recovering/Resolving]
